FAERS Safety Report 4472800-3 (Version None)
Quarter: 2004Q4

REPORT INFORMATION
  Report Type: 
  Country: None (occurrence: None)
  Receive Date: 20041013
  Receipt Date: 20041005
  Transmission Date: 20050328
  Serious: Yes (Other)
  Sender: FDA-Public Use
  Company Number: 200419935GDDC

PATIENT
  Age: 14 Year
  Sex: Female
  Weight: 40 kg

DRUGS (4)
  1. RIFAMPICIN [Suspect]
     Indication: TUBERCULOSIS
     Route: 048
  2. ISONIAZID [Suspect]
     Indication: TUBERCULOSIS
     Route: 048
  3. PYRAZINAMIDE [Suspect]
     Indication: TUBERCULOSIS
     Route: 048
  4. ETHAMBUTOL HCL [Suspect]
     Indication: TUBERCULOSIS
     Route: 048

REACTIONS (4)
  - DRUG LEVEL INCREASED [None]
  - RENAL IMPAIRMENT [None]
  - RETINAL HAEMORRHAGE [None]
  - THROMBOCYTOPENIA [None]
